FAERS Safety Report 7334359-2 (Version None)
Quarter: 2011Q1

REPORT INFORMATION
  Report Type: 
  Country: None (occurrence: None)
  Receive Date: 20110307
  Receipt Date: 20110105
  Transmission Date: 20110831
  Serious: No
  Sender: FDA-Public Use
  Company Number: US-KINGPHARMUSA00001-K201100024

PATIENT
  Age: 53 Year
  Sex: Male

DRUGS (2)
  1. ANTACID TAB [Concomitant]
  2. EMBEDA [Suspect]
     Indication: PAIN
     Dosage: 20 MG, BID
     Route: 048
     Dates: start: 20100101

REACTIONS (1)
  - DECREASED APPETITE [None]
